FAERS Safety Report 5381857-7 (Version None)
Quarter: 2007Q3

REPORT INFORMATION
  Report Type: 
  Country: None (occurrence: None)
  Receive Date: 20070709
  Receipt Date: 20070626
  Transmission Date: 20080115
  Serious: Yes (Other)
  Sender: FDA-Public Use
  Company Number: GB-ROCHE-502557

PATIENT
  Age: 87 Year
  Sex: Male

DRUGS (3)
  1. BONIVA [Suspect]
     Indication: FRACTURE
     Route: 048
     Dates: start: 20061208, end: 20070612
  2. PHENYTOIN [Concomitant]
     Route: 048
     Dates: start: 20070401, end: 20070501
  3. LEVETIRACETAM [Concomitant]
     Dosage: TITRATION
     Route: 048

REACTIONS (4)
  - BLISTER [None]
  - DYSPHAGIA [None]
  - ULCER [None]
  - WRONG TECHNIQUE IN DRUG USAGE PROCESS [None]
